FAERS Safety Report 6143896-8 (Version None)
Quarter: 2009Q2

REPORT INFORMATION
  Report Type: 
  Country: None (occurrence: None)
  Receive Date: 20090406
  Receipt Date: 20090326
  Transmission Date: 20091009
  Serious: Yes (Hospitalization)
  Sender: FDA-Public Use
  Company Number: PHHY2009DE11549

PATIENT

DRUGS (8)
  1. DIOVAN HCT [Suspect]
     Indication: HYPERTENSION
     Dosage: 1 DF, QD
     Route: 048
     Dates: end: 20080916
  2. CALCIMAGON [Interacting]
     Indication: OSTEOPOROTIC FRACTURE
     Dosage: 500 MG, QD
     Route: 048
  3. PARATHYROID HORMONES AND ANALOGUES (PREOTACT) [Interacting]
     Dosage: UNK
     Dates: end: 20080912
  4. ARCOXIA [Concomitant]
     Indication: SPINAL FRACTURE
     Dosage: 60 MG, QD
     Route: 048
     Dates: start: 20080801
  5. MICTONORM [Concomitant]
     Indication: URINARY INCONTINENCE
     Dosage: 15 MG, BID
  6. NOVALGIN                                /SCH/ [Concomitant]
     Indication: SPINAL FRACTURE
     Dosage: 500 MG, BID
     Dates: start: 20080801
  7. OMEPRAZOLE [Concomitant]
     Indication: PROPHYLAXIS AGAINST GASTROINTESTINAL ULCER
     Dosage: 40 MG, QD
     Dates: start: 20080801
  8. STILNOX                                 /FRA/ [Concomitant]
     Indication: SLEEP DISORDER
     Dosage: 5 MG, QD

REACTIONS (8)
  - BLOOD CREATININE DECREASED [None]
  - C-REACTIVE PROTEIN INCREASED [None]
  - DRUG INTERACTION [None]
  - GENERAL PHYSICAL HEALTH DETERIORATION [None]
  - HYPERCALCAEMIA [None]
  - HYPOKALAEMIA [None]
  - HYPONATRAEMIA [None]
  - SOMNOLENCE [None]
